FAERS Safety Report 6029825-6 (Version None)
Quarter: 2008Q4

REPORT INFORMATION
  Report Type: 
  Country: None (occurrence: None)
  Receive Date: 20081222
  Receipt Date: 20080929
  Transmission Date: 20090506
  Serious: No
  Sender: FDA-Public Use
  Company Number: US-WYE-H06194408

PATIENT
  Age: 56 Year
  Sex: Female

DRUGS (5)
  1. PRISTIQ [Suspect]
     Indication: DEPRESSION
     Dosage: 50 MG  1X PER 1 DAY, ORAL
     Route: 048
     Dates: start: 20080501, end: 20081001
  2. NASONEX [Concomitant]
  3. ZYRTEC [Concomitant]
  4. VERAPAMIL [Concomitant]
  5. LORAZEPAM [Concomitant]

REACTIONS (4)
  - FATIGUE [None]
  - FEELING ABNORMAL [None]
  - INSOMNIA [None]
  - MEMORY IMPAIRMENT [None]
